FAERS Safety Report 21003259 (Version 4)
Quarter: 2022Q4

REPORT INFORMATION
  Report Type: Spontaneous
  Country: US (occurrence: US)
  Receive Date: 20220624
  Receipt Date: 20221117
  Transmission Date: 20230112
  Serious: Yes (Other)
  Sender: FDA-Public Use
  Company Number: US-BRISTOL-MYERS SQUIBB COMPANY-2022-063354

PATIENT
  Age: 74 Year
  Sex: Female

DRUGS (1)
  1. REVLIMID [Suspect]
     Active Substance: LENALIDOMIDE
     Indication: Myelodysplastic syndrome
     Dosage: TAKE 1 CAPSULE
     Route: 048
     Dates: start: 20220321

REACTIONS (7)
  - Constipation [Unknown]
  - Gastrointestinal disorder [Not Recovered/Not Resolved]
  - Tooth disorder [Unknown]
  - Tongue ulceration [Unknown]
  - Diarrhoea [Unknown]
  - Paraesthesia [Unknown]
  - Nephrolithiasis [Unknown]
